FAERS Safety Report 12138955 (Version 2)
Quarter: 2016Q1

REPORT INFORMATION
  Report Type: Spontaneous
  Country: IT (occurrence: IT)
  Receive Date: 20160302
  Receipt Date: 20160311
  Transmission Date: 20160526
  Serious: Yes (Hospitalization)
  Sender: FDA-Public Use
  Company Number: IT-TEVA-638522ACC

PATIENT
  Age: 86 Year
  Sex: Female

DRUGS (3)
  1. TRIAZOLAM. [Concomitant]
     Active Substance: TRIAZOLAM
     Indication: PRODUCT USED FOR UNKNOWN INDICATION
  2. ENALAPRIL MALEATE. [Suspect]
     Active Substance: ENALAPRIL MALEATE
     Indication: PRODUCT USED FOR UNKNOWN INDICATION
     Dosage: 20 MILLIGRAM DAILY;
     Route: 048
     Dates: start: 20160122, end: 20160127
  3. LASIX [Concomitant]
     Active Substance: FUROSEMIDE
     Indication: PRODUCT USED FOR UNKNOWN INDICATION

REACTIONS (6)
  - Aphasia [Recovering/Resolving]
  - Drug abuse [Unknown]
  - Syncope [Recovering/Resolving]
  - Asthenia [Recovering/Resolving]
  - Orthostatic hypotension [Recovering/Resolving]
  - Eye movement disorder [Recovering/Resolving]

NARRATIVE: CASE EVENT DATE: 20160127
